FAERS Safety Report 6980728-X (Version None)
Quarter: 2010Q3

REPORT INFORMATION
  Report Type: 
  Country: None (occurrence: None)
  Receive Date: 20100914
  Receipt Date: 20100907
  Transmission Date: 20110219
  Serious: Yes (Other)
  Sender: FDA-Public Use
  Company Number: US-BAYER-201033068NA

PATIENT
  Sex: Female

DRUGS (1)
  1. CLIMARA [Suspect]
     Indication: HOT FLUSH
     Route: 062
     Dates: start: 20100728, end: 20100728

REACTIONS (7)
  - APPLICATION SITE EXFOLIATION [None]
  - CHLOASMA [None]
  - DISCOMFORT [None]
  - ERYTHEMA MULTIFORME [None]
  - FEELING OF BODY TEMPERATURE CHANGE [None]
  - HIRSUTISM [None]
  - VAGINAL HAEMORRHAGE [None]
